FAERS Safety Report 7749620-7 (Version None)
Quarter: 2011Q3

REPORT INFORMATION
  Report Type: 
  Country: None (occurrence: None)
  Receive Date: 20110914
  Receipt Date: 20100715
  Transmission Date: 20111222
  Serious: No
  Sender: FDA-Public Use
  Company Number: US-BAYER-201028178NA

PATIENT
  Sex: Female

DRUGS (1)
  1. MIRENA [Suspect]
     Indication: PRODUCT USED FOR UNKNOWN INDICATION
     Dosage: FREQUENCY: CONTINUOUS
     Route: 015
     Dates: start: 20080101

REACTIONS (5)
  - FEELING ABNORMAL [None]
  - ABDOMINAL DISTENSION [None]
  - WEIGHT INCREASED [None]
  - ABDOMINAL PAIN [None]
  - VAGINAL HAEMORRHAGE [None]
